FAERS Safety Report 7874962-4 (Version None)
Quarter: 2011Q4

REPORT INFORMATION
  Report Type: 
  Country: None (occurrence: None)
  Receive Date: 20111031
  Receipt Date: 20111021
  Transmission Date: 20120403
  Serious: Yes (Hospitalization, Other)
  Sender: FDA-Public Use
  Company Number: US-BAYER-2011-052119

PATIENT
  Age: 38 Year
  Sex: Female

DRUGS (11)
  1. COLACE [Concomitant]
     Dosage: 100 MG, BID
  2. NEXAVAR [Suspect]
     Indication: SARCOMA
     Dosage: 400 MG, BID
     Dates: start: 20110606
  3. SUCRALFATE [Concomitant]
     Dosage: UNK UNK, BID
  4. SYNTHROID [Concomitant]
     Dosage: 50 MCG DAILY
     Route: 048
  5. ALLEGRA [Concomitant]
  6. SPIRONOLACTONE [Concomitant]
     Dosage: 50 MG, TID
  7. MAGNESIUM OXIDE [Concomitant]
     Dosage: 250 MG, QD
  8. TRENTAL [Concomitant]
     Dosage: 400 MG, BID
  9. ASCORBIC ACID [Concomitant]
     Dosage: DAILY
     Route: 048
  10. ATIVAN [Concomitant]
     Dosage: UNK UNK, PRN
  11. MS CONTIN [Concomitant]
     Dosage: 15 MG, BID

REACTIONS (16)
  - RECTAL HAEMORRHAGE [None]
  - CELLULITIS [None]
  - ERYTHEMA [None]
  - DRY SKIN [None]
  - PYREXIA [None]
  - FREQUENT BOWEL MOVEMENTS [None]
  - ANORECTAL DISCOMFORT [None]
  - VAGINAL DISCHARGE [None]
  - EPISTAXIS [None]
  - DECREASED APPETITE [None]
  - LOCALISED OEDEMA [None]
  - FATIGUE [None]
  - OEDEMA GENITAL [None]
  - HYPERSENSITIVITY [None]
  - PULMONARY OEDEMA [None]
  - PAIN OF SKIN [None]
